FAERS Safety Report 6484795-1 (Version None)
Quarter: 2009Q4

REPORT INFORMATION
  Report Type: 
  Country: None (occurrence: None)
  Receive Date: 20091209
  Receipt Date: 20090604
  Transmission Date: 20100525
  Serious: No
  Sender: FDA-Public Use
  Company Number: A0769577A

PATIENT
  Age: 50 Year
  Sex: Female

DRUGS (2)
  1. AVANDAMET [Suspect]
  2. ROSIGLITAZONE MALEATE [Concomitant]
     Indication: DRUG USE FOR UNKNOWN INDICATION
     Route: 048

REACTIONS (4)
  - DIZZINESS [None]
  - HEART RATE IRREGULAR [None]
  - HYPERTENSION [None]
  - SWELLING [None]
